FAERS Safety Report 5950370-8 (Version None)
Quarter: 2008Q4

REPORT INFORMATION
  Report Type: 
  Country: None (occurrence: None)
  Receive Date: 20081112
  Receipt Date: 20081104
  Transmission Date: 20090506
  Serious: Yes (Other)
  Sender: FDA-Public Use
  Company Number: PHHY2008BR27346

PATIENT
  Age: 71 Year
  Sex: Female
  Weight: 92 kg

DRUGS (8)
  1. EXELON [Suspect]
     Indication: PARKINSON'S DISEASE
     Dosage: 1.5 MG, UNK
     Route: 048
     Dates: start: 20080819, end: 20081104
  2. CAPTOPRIL [Concomitant]
     Indication: BLOOD PRESSURE INCREASED
     Dosage: 50 MG, QD
     Route: 048
  3. HYDROCHLOROTHIAZIDE [Concomitant]
     Indication: HYPERTENSION
     Dosage: 25 MG, QD
     Route: 048
  4. AMITRIPTYLINE HCL [Concomitant]
     Indication: DEPRESSION
     Dosage: 50 MG, QD
     Route: 048
  5. RIVOTRIL [Concomitant]
     Indication: DEPRESSION
     Dosage: 2 MG, QD
     Route: 048
  6. JUMEXAL [Concomitant]
     Indication: PARKINSON'S DISEASE
     Dosage: 10 MG, QD
     Route: 048
  7. MANTIDAN [Concomitant]
     Indication: PARKINSON'S DISEASE
     Dosage: UNK
  8. AKINETON [Concomitant]
     Indication: PARKINSON'S DISEASE
     Dosage: 2 MG, TID
     Route: 048

REACTIONS (12)
  - ANXIETY [None]
  - BALANCE DISORDER [None]
  - DECREASED APPETITE [None]
  - DEPRESSION [None]
  - GAIT DISTURBANCE [None]
  - HALLUCINATION [None]
  - HYPERTENSION [None]
  - MUSCLE RIGIDITY [None]
  - NERVOUSNESS [None]
  - SLEEP DISORDER [None]
  - TACHYCARDIA [None]
  - WEIGHT DECREASED [None]
